FAERS Safety Report 11609150 (Version 1)
Quarter: 2015Q4

REPORT INFORMATION
  Report Type: Report from Study
  Country: NZ (occurrence: NZ)
  Receive Date: 20151007
  Receipt Date: 20151007
  Transmission Date: 20160304
  Serious: Yes (Other)
  Sender: FDA-Public Use
  Company Number: NZ-ABBVIE-15K-118-1475036-00

PATIENT
  Age: 43 Year
  Sex: Female

DRUGS (1)
  1. HUMIRA [Suspect]
     Active Substance: ADALIMUMAB
     Indication: CROHN^S DISEASE
     Route: 065

REACTIONS (5)
  - Vitamin B12 decreased [Unknown]
  - Skin discolouration [Unknown]
  - Abdominal mass [Unknown]
  - Vitamin D decreased [Unknown]
  - Back pain [Unknown]

NARRATIVE: CASE EVENT DATE: 201509
